FAERS Safety Report 5367469-X (Version None)
Quarter: 2007Q2

REPORT INFORMATION
  Report Type: 
  Country: None (occurrence: None)
  Receive Date: 20070622
  Receipt Date: 20060829
  Transmission Date: 20071010
  Serious: No
  Sender: FDA-Public Use
  Company Number: US-ASTRAZENECA-2006UW15682

PATIENT
  Age: 81 Year
  Sex: Male
  Weight: 72.7 kg

DRUGS (5)
  1. PULMICORT RESPULES [Suspect]
     Indication: EMPHYSEMA
     Route: 055
     Dates: start: 20060805
  2. ALBUTEROL [Suspect]
     Indication: CHRONIC OBSTRUCTIVE PULMONARY DISEASE
     Dates: start: 20060424
  3. ATROVENT [Suspect]
     Indication: CHRONIC OBSTRUCTIVE PULMONARY DISEASE
     Dates: start: 20060424
  4. DUONEB [Concomitant]
  5. FLOMAX [Concomitant]
     Indication: PROSTATISM
     Route: 048
     Dates: start: 20060424

REACTIONS (2)
  - DRUG INEFFECTIVE [None]
  - DRY MOUTH [None]
